FAERS Safety Report 5527602-3 (Version None)
Quarter: 2007Q4

REPORT INFORMATION
  Report Type: 
  Country: None (occurrence: None)
  Receive Date: 20071128
  Receipt Date: 20071116
  Transmission Date: 20080405
  Serious: Yes (Other)
  Sender: FDA-Public Use
  Company Number: DE-WYE-G00626307

PATIENT
  Sex: Female

DRUGS (1)
  1. VENLAFAXIINE HCL [Suspect]
     Route: 048
     Dates: start: 20050101

REACTIONS (1)
  - LEUKAEMIA [None]
